FAERS Safety Report 7584765-6 (Version None)
Quarter: 2011Q2

REPORT INFORMATION
  Report Type: 
  Country: None (occurrence: None)
  Receive Date: 20110630
  Receipt Date: 20110617
  Transmission Date: 20111010
  Serious: Yes (Other)
  Sender: FDA-Public Use
  Company Number: PHHY2010JP65712

PATIENT
  Sex: Male
  Weight: 65 kg

DRUGS (4)
  1. AZUNOL [Concomitant]
     Dosage: UNK UKN, UNK
     Dates: start: 20100727, end: 20100810
  2. LOXONIN [Concomitant]
     Dosage: 1 DF, UNK
     Route: 048
     Dates: start: 20100810
  3. POSTERISAN [Concomitant]
     Dosage: 2 DF, UNK
     Dates: start: 20100824
  4. AFINITOR [Suspect]
     Indication: METASTATIC RENAL CELL CARCINOMA
     Dosage: 10 MG/DAY
     Route: 048
     Dates: start: 20100621

REACTIONS (7)
  - PROCTALGIA [None]
  - BLOOD GLUCOSE INCREASED [None]
  - ARTHRALGIA [None]
  - BLOOD CREATININE INCREASED [None]
  - STOMATITIS [None]
  - NEOPLASM MALIGNANT [None]
  - HAEMATOCRIT DECREASED [None]
